FAERS Safety Report 19378976 (Version 1)
Quarter: 2021Q2

REPORT INFORMATION
  Report Type: Spontaneous
  Country: US (occurrence: US)
  Receive Date: 20210606
  Receipt Date: 20210606
  Transmission Date: 20210717
  Serious: Yes (Other)
  Sender: FDA-Public Use
  Company Number: US-SA-2021SA185557

PATIENT
  Age: 57 Year
  Sex: Male

DRUGS (1)
  1. ZANTAC [Suspect]
     Active Substance: RANITIDINE HYDROCHLORIDE
     Indication: HYPERCHLORHYDRIA
     Dosage: UNK, FREQUENCY: OTHER
     Dates: start: 198001, end: 201901

REACTIONS (2)
  - Prostate cancer stage I [Unknown]
  - Bone cancer [Unknown]

NARRATIVE: CASE EVENT DATE: 20160101
